FAERS Safety Report 7207017-2 (Version None)
Quarter: 2011Q1

REPORT INFORMATION
  Report Type: 
  Country: None (occurrence: None)
  Receive Date: 20110103
  Receipt Date: 20101224
  Transmission Date: 20110831
  Serious: Yes (Other)
  Sender: FDA-Public Use
  Company Number: B0673067A

PATIENT
  Sex: Male

DRUGS (7)
  1. TEGRETOL [Concomitant]
     Indication: EPILEPSY
     Route: 048
     Dates: start: 20100112, end: 20100203
  2. MYSTAN [Concomitant]
  3. PHENOBAL [Concomitant]
     Route: 048
  4. LAMICTAL [Suspect]
     Indication: EPILEPSY
     Dosage: 100MG PER DAY
     Route: 048
     Dates: start: 20100104
  5. LANDSEN [Concomitant]
     Indication: EPILEPSY
     Dosage: 1.5MG PER DAY
     Route: 048
  6. DEPAKENE [Concomitant]
     Indication: EPILEPSY
     Dosage: 1200MG PER DAY
     Route: 048
  7. RISPERDAL [Concomitant]
     Dosage: 2G PER DAY
     Dates: start: 20100428

REACTIONS (4)
  - PERSECUTORY DELUSION [None]
  - EXTRAPYRAMIDAL DISORDER [None]
  - HALLUCINATION, AUDITORY [None]
  - EYE PAIN [None]
